FAERS Safety Report 10218896 (Version 1)
Quarter: 2014Q2

REPORT INFORMATION
  Report Type: Spontaneous
  Country: US (occurrence: None)
  Receive Date: 20140604
  Receipt Date: 20140604
  Transmission Date: 20141212
  Serious: No
  Sender: FDA-Public Use
  Company Number: None

PATIENT
  Age: 52 Year
  Sex: Female
  Weight: 79.38 kg

DRUGS (1)
  1. FENTANYL TRANSDERMAL 12MCG/H SANDOZ [Suspect]
     Indication: SPINAL FUSION SURGERY
     Dosage: 1 PATCH EVERY 2 DAYS  EVERY 2 DAYS SKIN
     Route: 062
     Dates: start: 20140417, end: 20140602

REACTIONS (5)
  - Product quality issue [None]
  - Crying [None]
  - Pain [None]
  - Depression [None]
  - Drug ineffective [None]
